FAERS Safety Report 14686635 (Version 1)
Quarter: 2018Q1

REPORT INFORMATION
  Report Type: Spontaneous
  Country: US (occurrence: US)
  Receive Date: 20180327
  Receipt Date: 20180327
  Transmission Date: 20180509
  Serious: Yes (Other)
  Sender: FDA-Public Use
  Company Number: US-BRISTOL-MYERS SQUIBB COMPANY-BMS-2018-026567

PATIENT
  Sex: Female

DRUGS (2)
  1. ELIQUIS [Suspect]
     Active Substance: APIXABAN
     Indication: THROMBOSIS PROPHYLAXIS
     Dosage: 5 MG, BID
     Route: 065
     Dates: start: 201708
  2. ELIQUIS [Suspect]
     Active Substance: APIXABAN
     Indication: PROTEIN C DEFICIENCY
     Route: 065

REACTIONS (5)
  - Prescribed overdose [Unknown]
  - Liver disorder [Unknown]
  - Malaise [Unknown]
  - Malnutrition [Unknown]
  - Alopecia [Unknown]
